FAERS Safety Report 17778548 (Version 1)
Quarter: 2020Q2

REPORT INFORMATION
  Report Type: Report from Study
  Country: None (occurrence: RO)
  Receive Date: 20200514
  Receipt Date: 20200514
  Transmission Date: 20200714
  Serious: Yes (Hospitalization)
  Sender: FDA-Public Use
  Company Number: RO-ABBVIE-20K-135-3399516-00

PATIENT
  Age: 81 Year
  Sex: Male

DRUGS (3)
  1. PROTENONA [Concomitant]
     Indication: BLOOD PRESSURE ABNORMAL
     Route: 048
  2. EXVIERA [Suspect]
     Active Substance: DASABUVIR
     Indication: CHRONIC HEPATITIS C
     Route: 048
     Dates: start: 20200315
  3. VIEKIRAX [Suspect]
     Active Substance: OMBITASVIR\PARITAPREVIR\RITONAVIR
     Indication: CHRONIC HEPATITIS C
     Route: 048
     Dates: start: 20200315

REACTIONS (8)
  - Oedema peripheral [Not Recovered/Not Resolved]
  - Tremor [Not Recovered/Not Resolved]
  - Asthenia [Not Recovered/Not Resolved]
  - Anal haemorrhage [Not Recovered/Not Resolved]
  - Haemoglobin abnormal [Recovering/Resolving]
  - Amnesia [Not Recovered/Not Resolved]
  - Hypotension [Not Recovered/Not Resolved]
  - Face oedema [Not Recovered/Not Resolved]

NARRATIVE: CASE EVENT DATE: 2020
